FAERS Safety Report 23637630 (Version 2)
Quarter: 2024Q3

REPORT INFORMATION
  Report Type: Spontaneous
  Country: US (occurrence: US)
  Receive Date: 20240315
  Receipt Date: 20240716
  Transmission Date: 20241016
  Serious: No
  Sender: SANOFI AVENTIS
  Company Number: US-SANOFI-01973534

PATIENT
  Age: 78 Year
  Sex: Female

DRUGS (2)
  1. LANTUS SOLOSTAR [Suspect]
     Active Substance: INSULIN GLARGINE
     Indication: Type 2 diabetes mellitus
     Dosage: 10 UNITS QD
     Route: 058
     Dates: start: 20240307, end: 2024
  2. LANTUS SOLOSTAR [Suspect]
     Active Substance: INSULIN GLARGINE
     Dosage: 15 IU, QD
     Route: 065
     Dates: start: 2024

REACTIONS (2)
  - Eye disorder [Unknown]
  - Product storage error [Unknown]

NARRATIVE: CASE EVENT DATE: 20240101
